FAERS Safety Report 11703467 (Version 1)
Quarter: 2015Q4

REPORT INFORMATION
  Report Type: Spontaneous
  Country: US (occurrence: US)
  Receive Date: 20151105
  Receipt Date: 20151105
  Transmission Date: 20160304
  Serious: No
  Sender: FDA-Public Use
  Company Number: US-ANACOR-2015ANA00133

PATIENT
  Age: 76 Year
  Sex: Male
  Weight: 79.37 kg

DRUGS (3)
  1. VITAMIN D [Concomitant]
     Active Substance: CHOLECALCIFEROL
     Dosage: UNK
     Dates: start: 2010
  2. CIPICOR [Concomitant]
     Dosage: 20 MG, 1X/DAY
  3. KERYDIN [Suspect]
     Active Substance: TAVABOROLE
     Indication: FUNGAL INFECTION
     Dosage: UNK, 1X/DAY
     Route: 061
     Dates: start: 201509, end: 20150915

REACTIONS (7)
  - Infection [Unknown]
  - Urticaria [Not Recovered/Not Resolved]
  - Blister [Recovering/Resolving]
  - Dizziness [Recovered/Resolved]
  - Pruritus [Recovered/Resolved]
  - Hypersensitivity [Not Recovered/Not Resolved]
  - Rash macular [Not Recovered/Not Resolved]

NARRATIVE: CASE EVENT DATE: 201509
